FAERS Safety Report 6254600-7 (Version None)
Quarter: 2009Q3

REPORT INFORMATION
  Report Type: 
  Country: None (occurrence: None)
  Receive Date: 20090702
  Receipt Date: 20090623
  Transmission Date: 20100115
  Serious: Yes (Hospitalization)
  Sender: FDA-Public Use
  Company Number: A0794395A

PATIENT
  Age: 47 Year
  Sex: Female
  Weight: 142.7 kg

DRUGS (4)
  1. ELTROMBOPAG [Suspect]
     Indication: THROMBOCYTOPENIA
     Dosage: 25MG PER DAY
     Route: 048
     Dates: start: 20090330, end: 20090416
  2. PLACEBO [Suspect]
     Indication: THROMBOCYTOPENIA
     Route: 048
     Dates: start: 20090416, end: 20090619
  3. COPEGUS [Suspect]
     Route: 048
     Dates: start: 20090416, end: 20090619
  4. PEGASYS [Suspect]
     Dosage: 180MCG WEEKLY
     Route: 058
     Dates: start: 20090416, end: 20090619

REACTIONS (1)
  - STEVENS-JOHNSON SYNDROME [None]
